FAERS Safety Report 7064844-2 (Version None)
Quarter: 2010Q4

REPORT INFORMATION
  Report Type: 
  Country: None (occurrence: None)
  Receive Date: 20101027
  Receipt Date: 19861111
  Transmission Date: 20110411
  Serious: Yes (Death, Life-Threatening, Hospitalization)
  Sender: FDA-Public Use
  Company Number: US-ROCHE-860201319001

PATIENT
  Age: 51 Year
  Sex: Female
  Weight: 76.2 kg

DRUGS (4)
  1. VERSED [Suspect]
     Indication: LAPAROTOMY
     Route: 042
     Dates: start: 19860628, end: 19860628
  2. VALIUM [Suspect]
     Indication: LAPAROTOMY
     Route: 042
     Dates: start: 19860628, end: 19860628
  3. TIMENTIN [Concomitant]
     Route: 042
     Dates: start: 19860628, end: 19860628
  4. ZANTAC [Concomitant]
     Route: 042

REACTIONS (2)
  - CARDIO-RESPIRATORY ARREST [None]
  - HYPOTENSION [None]
